FAERS Safety Report 10178837 (Version 1)
Quarter: 2014Q2

REPORT INFORMATION
  Report Type: Spontaneous
  Country: US (occurrence: US)
  Receive Date: 20140519
  Receipt Date: 20140519
  Transmission Date: 20141212
  Serious: No
  Sender: FDA-Public Use
  Company Number: US-BIOGENIDEC-2014BI031209

PATIENT
  Age: 53 Year
  Sex: Female

DRUGS (12)
  1. TECFIDERA [Suspect]
     Indication: MULTIPLE SCLEROSIS
     Route: 048
     Dates: start: 20140208
  2. AMPYRA [Concomitant]
     Indication: MULTIPLE SCLEROSIS
     Route: 048
     Dates: start: 2013
  3. AMPYRA [Concomitant]
     Indication: GAIT DISTURBANCE
     Route: 048
     Dates: start: 2013
  4. LEXAPRO [Concomitant]
     Indication: DEPRESSION
  5. LEXAPRO [Concomitant]
     Indication: ANXIETY
  6. COLACE [Concomitant]
  7. CYMBALTA [Concomitant]
  8. DOCUSATE CALCIUM [Concomitant]
  9. FIBER [Concomitant]
  10. FISH OIL [Concomitant]
     Indication: ROUTINE HEALTH MAINTENANCE
  11. GLUCOSAMINE CHONDROITIN [Concomitant]
  12. VITAMIN D [Concomitant]
     Indication: VITAMIN D DEFICIENCY

REACTIONS (3)
  - Somnolence [Not Recovered/Not Resolved]
  - Flushing [Unknown]
  - Pruritus generalised [Unknown]
